FAERS Safety Report 4809827-5 (Version None)
Quarter: 2005Q4

REPORT INFORMATION
  Report Type: 
  Country: None (occurrence: None)
  Receive Date: 20051024
  Receipt Date: 20051024
  Transmission Date: 20060501
  Serious: Yes (Hospitalization, Other)
  Sender: FDA-Public Use
  Company Number: None

PATIENT
  Sex: Female
  Weight: 71.25 kg

DRUGS (3)
  1. CARMUSTINE [Suspect]
     Indication: ANAPLASTIC ASTROCYTOMA
     Dosage: SEE IMAGE
     Dates: start: 20050606, end: 20050803
  2. CARMUSTINE [Suspect]
     Indication: ANAPLASTIC ASTROCYTOMA
     Dosage: SEE IMAGE
     Dates: start: 20050801
  3. RADIATION  RT [Suspect]
     Dosage: SEE IMAGE
     Dates: start: 20050801

REACTIONS (5)
  - ABULIA [None]
  - BRAIN ABSCESS [None]
  - CEREBRAL INFARCTION [None]
  - MUTISM [None]
  - STAPHYLOCOCCAL INFECTION [None]
